FAERS Safety Report 9473995 (Version 2)
Quarter: 2013Q3

REPORT INFORMATION
  Report Type: Spontaneous
  Country: IT (occurrence: IT)
  Receive Date: 20130823
  Receipt Date: 20130905
  Transmission Date: 20140515
  Serious: Yes (Hospitalization)
  Sender: FDA-Public Use
  Company Number: IT-TEVA-427577ISR

PATIENT
  Age: 28 Year
  Sex: Male

DRUGS (2)
  1. LEVOFLOXACIN [Suspect]
     Indication: BRONCHOPNEUMONIA
     Dosage: 500 MILLIGRAM DAILY;
     Route: 048
  2. PIPERACILLIN, TAZOBACTAM [Concomitant]
     Indication: BRONCHOPNEUMONIA
     Route: 042

REACTIONS (1)
  - Kounis syndrome [Recovering/Resolving]
